FAERS Safety Report 10005370 (Version 1)
Quarter: 2014Q1

REPORT INFORMATION
  Report Type: Report from Study
  Country: RU (occurrence: RU)
  Receive Date: 20140313
  Receipt Date: 20140313
  Transmission Date: 20141002
  Serious: Yes (Hospitalization)
  Sender: FDA-Public Use
  Company Number: RU-ROCHE-1358196

PATIENT
  Age: 72 Year
  Sex: Female

DRUGS (5)
  1. HERCEPTIN [Suspect]
     Indication: GASTRIC CANCER
     Dosage: LOADING DOSE
     Route: 065
     Dates: start: 20130919
  2. HERCEPTIN [Suspect]
     Route: 065
     Dates: end: 20140114
  3. CISPLATINE [Concomitant]
     Indication: GASTRIC CANCER
     Route: 065
     Dates: start: 20130919, end: 20140114
  4. IRINOTECAN [Concomitant]
     Indication: GASTRIC CANCER
     Dosage: 1 AND 15 DAYS
     Route: 065
     Dates: start: 20130919, end: 20140114
  5. MALTOFER (RUSSIA) [Concomitant]
     Route: 065
     Dates: start: 20131218

REACTIONS (2)
  - Cardiac disorder [Unknown]
  - Angina pectoris [Unknown]
